FAERS Safety Report 9865958 (Version 1)
Quarter: 2014Q1

REPORT INFORMATION
  Report Type: Spontaneous
  Country: US (occurrence: US)
  Receive Date: 20140203
  Receipt Date: 20140203
  Transmission Date: 20141002
  Serious: No
  Sender: FDA-Public Use
  Company Number: US-ALLERGAN-1313734US

PATIENT
  Age: 60 Year
  Sex: Female

DRUGS (10)
  1. RESTASIS [Suspect]
     Indication: DRY EYE
     Dosage: 2 GTT, SINGLE
     Route: 047
     Dates: start: 20130902, end: 20130902
  2. TRIAMCINOLOL VAGINAL CREAM [Concomitant]
     Indication: LICHEN SCLEROSUS
     Dosage: UNK
  3. DIOVAN HCT [Concomitant]
     Indication: HYPERTENSION
     Dosage: UNK UNK, QD
     Route: 048
     Dates: start: 2010
  4. METFORMIN [Concomitant]
     Indication: TYPE 2 DIABETES MELLITUS
     Dosage: 1000 MG, QAM
     Route: 048
  5. METFORMIN [Concomitant]
     Indication: TYPE 2 DIABETES MELLITUS
     Dosage: 500 MG, QPM
     Route: 048
  6. OMEPRAZOLE [Concomitant]
     Indication: GASTROOESOPHAGEAL REFLUX DISEASE
     Dosage: UNK UNK, QD
     Route: 048
  7. CRESTOR [Concomitant]
     Indication: BLOOD CHOLESTEROL
     Dosage: 5 MG, QD
     Route: 048
  8. SENIOR WOMEN^S MVI [Concomitant]
     Indication: SUPPLEMENTATION THERAPY
     Dosage: UNK
  9. ESTRACE VAGINAL [Concomitant]
     Indication: PRODUCT USED FOR UNKNOWN INDICATION
     Dosage: UNK
  10. SALINE EYEDROPS [Concomitant]
     Indication: PRODUCT USED FOR UNKNOWN INDICATION
     Dosage: UNK, PRN
     Route: 047

REACTIONS (6)
  - Hypoaesthesia [Recovered/Resolved]
  - Facial paresis [Recovered/Resolved]
  - Lip swelling [Recovered/Resolved]
  - Sensation of pressure [Recovered/Resolved]
  - Erythema [Recovered/Resolved]
  - Instillation site pain [Recovered/Resolved]
